FAERS Safety Report 11468214 (Version 28)
Quarter: 2018Q4

REPORT INFORMATION
  Report Type: Spontaneous
  Country: US (occurrence: US)
  Receive Date: 20150908
  Receipt Date: 20181213
  Transmission Date: 20190204
  Serious: Yes (Hospitalization, Other)
  Sender: FDA-Public Use
  Company Number: US-SA-2015SA132787

PATIENT
  Age: 73 Year
  Sex: Female

DRUGS (28)
  1. MULTAQ [Interacting]
     Active Substance: DRONEDARONE
     Dosage: 400 MG,BID
     Route: 048
     Dates: start: 20150826
  2. EFFIENT [Concomitant]
     Active Substance: PRASUGREL HYDROCHLORIDE
     Indication: THROMBOSIS PROPHYLAXIS
     Dosage: 10 MG,QD
     Route: 065
  3. ATENOLOL. [Concomitant]
     Active Substance: ATENOLOL
     Indication: BLOOD PRESSURE MEASUREMENT
     Dosage: 25 MG,QD
     Route: 065
  4. DEMEROL [Suspect]
     Active Substance: MEPERIDINE HYDROCHLORIDE
     Dosage: UNK UNK,UNK
     Route: 042
  5. SYNTHROID [Concomitant]
     Active Substance: LEVOTHYROXINE SODIUM
     Indication: THYROID DISORDER
     Dosage: .175 MG,QD
     Route: 065
  6. BABY ASPIRIN [Concomitant]
     Active Substance: ASPIRIN
     Indication: STENT PLACEMENT
     Dosage: UNK UNK, UNK
     Route: 065
  7. ESTRACE [Concomitant]
     Active Substance: ESTRADIOL
     Dosage: UNK UNK, UNK
     Route: 065
  8. DEMEROL [Suspect]
     Active Substance: MEPERIDINE HYDROCHLORIDE
     Dosage: .5 DF,UNK
     Route: 065
     Dates: start: 20150824
  9. EFFIENT [Concomitant]
     Active Substance: PRASUGREL HYDROCHLORIDE
     Indication: STENT PLACEMENT
  10. XANAX [Concomitant]
     Active Substance: ALPRAZOLAM
     Dosage: .5 DF,UNK
     Route: 065
  11. COZAAR [Concomitant]
     Active Substance: LOSARTAN POTASSIUM
     Dosage: UNK UNK, UNK
     Route: 065
  12. MULTAQ [Suspect]
     Active Substance: DRONEDARONE
     Indication: ATRIAL FIBRILLATION
     Dosage: 400 MG,BID
     Route: 048
     Dates: start: 20150115, end: 20150825
  13. ERYTHROMYCIN. [Suspect]
     Active Substance: ERYTHROMYCIN
     Dosage: UNK UNK,UNK
     Route: 065
  14. PRAVASTATIN. [Concomitant]
     Active Substance: PRAVASTATIN
     Indication: BLOOD CHOLESTEROL
     Dosage: 40 MG,QD
     Route: 065
  15. CYANOCOBALAMIN. [Concomitant]
     Active Substance: CYANOCOBALAMIN
     Dosage: UNK UNK, UNK
     Route: 065
  16. NITROFURANTOIN. [Interacting]
     Active Substance: NITROFURANTOIN
     Dosage: UNK UNK, UNK
     Route: 065
  17. ATORVASTATIN CALCIUM. [Interacting]
     Active Substance: ATORVASTATIN CALCIUM
     Dosage: UNK UNK,UNK
     Route: 065
  18. VICTOZA [Suspect]
     Active Substance: LIRAGLUTIDE
     Indication: DIABETES MELLITUS
     Dosage: 0.6 MG
  19. CEFUROXIME AXETIL. [Concomitant]
     Active Substance: CEFUROXIME AXETIL
     Dosage: UNK UNK,UNK
     Route: 065
     Dates: start: 20160107
  20. TORADOL [Suspect]
     Active Substance: KETOROLAC TROMETHAMINE
     Indication: BACK PAIN
     Dosage: UNK UNK,UNK
     Route: 065
  21. LINCOMYCIN HYDROCHLORIDE. [Concomitant]
     Active Substance: LINCOMYCIN HYDROCHLORIDE
     Indication: INFECTION
     Dosage: UNK UNK,UNK
     Route: 042
  22. MONISTAT [Concomitant]
     Active Substance: MICONAZOLE NITRATE
     Dosage: UNK UNK, UNK
     Route: 065
  23. DIGOXIN. [Interacting]
     Active Substance: DIGOXIN
     Dosage: UNK UNK,UNK
     Route: 065
  24. XARELTO [Interacting]
     Active Substance: RIVAROXABAN
     Dosage: UNK UNK,UNK
     Route: 065
  25. ULTRAM [Concomitant]
     Active Substance: TRAMADOL HYDROCHLORIDE
     Dosage: UNK UNK,UNK
     Route: 065
  26. BIOTIN [Concomitant]
     Active Substance: BIOTIN
     Dosage: UNK UNK, UNK
     Route: 065
  27. ISOSORBIDE MONONITRATE. [Interacting]
     Active Substance: ISOSORBIDE MONONITRATE
     Dosage: UNK UNK,UNK
     Route: 065
  28. NEURONTIN [Concomitant]
     Active Substance: GABAPENTIN
     Dosage: UNK UNK, UNK
     Route: 065

REACTIONS (44)
  - Kidney infection [Not Recovered/Not Resolved]
  - Atrial fibrillation [Recovered/Resolved]
  - Arthralgia [Unknown]
  - Back pain [Unknown]
  - Blood cholesterol [Unknown]
  - Muscle spasms [Unknown]
  - Sinus congestion [Unknown]
  - Wrist fracture [Unknown]
  - Therapeutic response decreased [Unknown]
  - Pain in extremity [Unknown]
  - Chest pain [Unknown]
  - Cardiac disorder [Unknown]
  - Angina pectoris [Unknown]
  - Tachycardia [Recovered/Resolved]
  - Sinus headache [Not Recovered/Not Resolved]
  - Oropharyngeal pain [Not Recovered/Not Resolved]
  - Epistaxis [Not Recovered/Not Resolved]
  - Arrhythmia [Unknown]
  - Hyperhidrosis [Unknown]
  - Blood urine present [Not Recovered/Not Resolved]
  - Heart rate decreased [Unknown]
  - Atrial fibrillation [Not Recovered/Not Resolved]
  - Gait disturbance [Unknown]
  - Bacterial infection [Unknown]
  - Dysuria [Not Recovered/Not Resolved]
  - Bacterial vulvovaginitis [Unknown]
  - Fibromyalgia [Unknown]
  - Product dose omission [Unknown]
  - Haemoptysis [Unknown]
  - Pulmonary congestion [Unknown]
  - Infection [Unknown]
  - Palpitations [Recovered/Resolved]
  - Blister [Unknown]
  - Urinary tract infection [Not Recovered/Not Resolved]
  - Migraine [Unknown]
  - Pleural effusion [Unknown]
  - Fungal infection [Unknown]
  - Respiratory tract congestion [Not Recovered/Not Resolved]
  - Urine abnormality [Not Recovered/Not Resolved]
  - Bladder pain [Recovering/Resolving]
  - Cystitis [Not Recovered/Not Resolved]
  - Drug interaction [Unknown]
  - Headache [Unknown]
  - Heart rate increased [Unknown]

NARRATIVE: CASE EVENT DATE: 2015
